FAERS Safety Report 4947905-0 (Version None)
Quarter: 2006Q1

REPORT INFORMATION
  Report Type: 
  Country: None (occurrence: None)
  Receive Date: 20060317
  Receipt Date: 20060317
  Transmission Date: 20060701
  Serious: Yes (Hospitalization)
  Sender: FDA-Public Use
  Company Number: None

PATIENT
  Sex: Male
  Weight: 62.1428 kg

DRUGS (1)
  1. DOCETAXEL IV 80 MG [Suspect]
     Indication: SQUAMOUS CELL CARCINOMA
     Dosage: INJ 31 IV PIGGYBACK OVER 15-30 MINUTES IV
     Route: 042
     Dates: start: 20051101, end: 20060301

REACTIONS (1)
  - OEDEMA PERIPHERAL [None]
